FAERS Safety Report 17458258 (Version 3)
Quarter: 2020Q2

REPORT INFORMATION
  Report Type: Report from Study
  Country: US (occurrence: US)
  Receive Date: 20200225
  Receipt Date: 20200619
  Transmission Date: 20200713
  Serious: Yes (Life-Threatening, Hospitalization)
  Sender: FDA-Public Use
  Company Number: US-PFIZER INC-2020072291

PATIENT
  Age: 56 Year
  Sex: Female
  Weight: 59.8 kg

DRUGS (6)
  1. CYTARABINE. [Suspect]
     Active Substance: CYTARABINE
     Dosage: 4980 MG, OVER 3 HOURS TWICE DAILY ON DAYS 1, 3, 5, SOLUTION
     Route: 042
     Dates: start: 20191211, end: 20191215
  2. GLASDEGIB [Suspect]
     Active Substance: GLASDEGIB
     Indication: ACUTE MYELOID LEUKAEMIA
     Dosage: 1X/DAY, ONCE DAILY CONTINUOUS
     Route: 048
     Dates: start: 20190907, end: 20200214
  3. CYTARABINE. [Suspect]
     Active Substance: CYTARABINE
     Indication: ACUTE MYELOID LEUKAEMIA
     Dosage: 185 MG, INDUCTION; DAILY BY CONTINUOUS INFUSION
     Route: 041
     Dates: start: 20190907, end: 20190913
  4. CYTARABINE. [Suspect]
     Active Substance: CYTARABINE
     Dosage: 4920 MG, OVER 3 HOURS TWICE DAILY ON DAYS 1, 3, 5, SOLUTION
     Route: 042
     Dates: start: 20200129, end: 20200202
  5. DAUNORUBICIN [Suspect]
     Active Substance: DAUNORUBICIN
     Indication: ACUTE MYELOID LEUKAEMIA
     Dosage: 110 MG, DAILY BY CONTINUOUS INFUSION
     Route: 041
     Dates: start: 20190907, end: 20190907
  6. CYTARABINE. [Suspect]
     Active Substance: CYTARABINE
     Indication: ACUTE MYELOID LEUKAEMIA
     Dosage: 5010 MG, OVER 3 HOURS TWICE DAILY ON DAYS 1, 3, 5, SOLUTION
     Route: 042
     Dates: start: 20191029, end: 20191102

REACTIONS (1)
  - Sepsis [Recovered/Resolved]

NARRATIVE: CASE EVENT DATE: 20200215
